FAERS Safety Report 21965481 (Version 5)
Quarter: 2023Q2

REPORT INFORMATION
  Report Type: Report from Study
  Country: CA (occurrence: CA)
  Receive Date: 20230208
  Receipt Date: 20230504
  Transmission Date: 20230721
  Serious: Yes (Hospitalization, Other)
  Sender: FDA-Public Use
  Company Number: CA-JNJFOC-20221203410

PATIENT
  Age: 55 Year
  Sex: Female
  Weight: 96 kg

DRUGS (1)
  1. REMICADE [Suspect]
     Active Substance: INFLIXIMAB
     Indication: Crohn^s disease
     Route: 042
     Dates: start: 20161101

REACTIONS (12)
  - Herpes zoster [Recovered/Resolved]
  - Humerus fracture [Recovering/Resolving]
  - Fall [Unknown]
  - Malaise [Recovering/Resolving]
  - Peripheral swelling [Unknown]
  - Muscular weakness [Unknown]
  - Nerve injury [Recovering/Resolving]
  - Swelling [Unknown]
  - Inappropriate schedule of product administration [Unknown]
  - Insomnia [Recovering/Resolving]
  - Pain in extremity [Recovering/Resolving]
  - Off label use [Unknown]

NARRATIVE: CASE EVENT DATE: 20161101
